FAERS Safety Report 10245111 (Version 2)
Quarter: 2014Q2

REPORT INFORMATION
  Report Type: Spontaneous
  Country: HU (occurrence: HU)
  Receive Date: 20140618
  Receipt Date: 20140618
  Transmission Date: 20141212
  Serious: Yes (Other)
  Sender: FDA-Public Use
  Company Number: HU-BAYER-2013-124741

PATIENT
  Sex: Female

DRUGS (1)
  1. CANESTEN [Suspect]
     Dosage: 200 MG, TID
     Route: 067
     Dates: start: 2013

REACTIONS (4)
  - Urinary tract infection [None]
  - Muscle spasms [None]
  - Vaginal discharge [Recovered/Resolved]
  - Maternal exposure during pregnancy [None]
